FAERS Safety Report 23879935 (Version 1)
Quarter: 2024Q2

REPORT INFORMATION
  Report Type: Spontaneous
  Country: CA (occurrence: None)
  Receive Date: 20240521
  Receipt Date: 20240521
  Transmission Date: 20240716
  Serious: Yes (Death)
  Sender: FDA-Public Use
  Company Number: CA-ROCHE-3566469

PATIENT
  Age: 14 Year
  Sex: Male

DRUGS (6)
  1. BEVACIZUMAB [Suspect]
     Active Substance: BEVACIZUMAB
     Indication: Malignant glioma
     Route: 065
  2. DEXAMETHASONE [Concomitant]
     Active Substance: DEXAMETHASONE
     Indication: Vasogenic cerebral oedema
     Route: 065
  3. DEXAMETHASONE [Concomitant]
     Active Substance: DEXAMETHASONE
  4. LOMUSTINE [Concomitant]
     Active Substance: LOMUSTINE
  5. TEMOZOLOMIDE [Concomitant]
     Active Substance: TEMOZOLOMIDE
  6. TRAMETINIB [Concomitant]
     Active Substance: TRAMETINIB

REACTIONS (2)
  - Malignant glioma [Fatal]
  - Off label use [Fatal]
